FAERS Safety Report 22075057 (Version 1)
Quarter: 2023Q1

REPORT INFORMATION
  Report Type: Spontaneous
  Country: US (occurrence: US)
  Receive Date: 20230308
  Receipt Date: 20230308
  Transmission Date: 20230418
  Serious: No
  Sender: FDA-Public Use
  Company Number: US-ALLERGAN-2228621US

PATIENT
  Sex: Female
  Weight: 72.57 kg

DRUGS (1)
  1. MESALAMINE [Suspect]
     Active Substance: MESALAMINE
     Indication: Colitis
     Dosage: 4 DF, QD

REACTIONS (2)
  - Drug ineffective [Unknown]
  - Colitis [Unknown]
